FAERS Safety Report 5746854-8 (Version None)
Quarter: 2008Q2

REPORT INFORMATION
  Report Type: 
  Country: None (occurrence: None)
  Receive Date: 20080522
  Receipt Date: 20080506
  Transmission Date: 20081010
  Serious: No
  Sender: FDA-Public Use
  Company Number: PHEH2008US04409

PATIENT
  Sex: Female

DRUGS (6)
  1. TYLENOL [Concomitant]
  2. VICODIN [Concomitant]
  3. ZOFRAN [Concomitant]
  4. TASIGNA [Suspect]
     Indication: CHRONIC MYELOID LEUKAEMIA
     Dosage: UNK, UNK
     Route: 048
     Dates: start: 20080320
  5. TASIGNA [Suspect]
     Dosage: 400 MG, BID
     Route: 048
  6. TASIGNA [Suspect]
     Dosage: 400 MG, QD
     Route: 048

REACTIONS (1)
  - RASH [None]
